FAERS Safety Report 9467525 (Version 1)
Quarter: 2013Q3

REPORT INFORMATION
  Report Type: Spontaneous
  Country: US (occurrence: None)
  Receive Date: 20130819
  Receipt Date: 20130819
  Transmission Date: 20140515
  Serious: Yes (Life-Threatening, Hospitalization)
  Sender: FDA-Public Use
  Company Number: None

PATIENT
  Age: 47 Year
  Sex: Female
  Weight: 127.01 kg

DRUGS (6)
  1. ADALIMUMAB [Suspect]
     Indication: OFF LABEL USE
     Dosage: 40MG SUBCUTANEOUS
     Route: 058
     Dates: start: 20130321, end: 20130328
  2. AMOXICILLIN TRI / POTASSIUM CLAV? [Concomitant]
  3. PSEUDOEPHEDRINE HCL [Concomitant]
  4. SODIUM CHLORIDE + SODIUM BICARBONATE ? [Concomitant]
  5. CETRIRIZINE HCL [Concomitant]
  6. MELOXICAM [Concomitant]

REACTIONS (1)
  - Immune thrombocytopenic purpura [None]
